FAERS Safety Report 7982305-0 (Version None)
Quarter: 2011Q4

REPORT INFORMATION
  Report Type: 
  Country: None (occurrence: None)
  Receive Date: 20111215
  Receipt Date: 20111201
  Transmission Date: 20120403
  Serious: Yes (Other)
  Sender: FDA-Public Use
  Company Number: PHHY2011MX104595

PATIENT
  Sex: Male
  Weight: 82 kg

DRUGS (2)
  1. SANDOSTATIN LAR [Suspect]
     Indication: NEUROENDOCRINE TUMOUR
     Dosage: 30 MG,
  2. EVEROLIMUS [Suspect]
     Indication: NEUROENDOCRINE TUMOUR
     Dosage: 10 MG, DAILY
     Route: 030
     Dates: start: 20111107

REACTIONS (4)
  - DERMATITIS [None]
  - RASH MACULO-PAPULAR [None]
  - SECRETION DISCHARGE [None]
  - PRURITUS [None]
